FAERS Safety Report 4493677-6 (Version None)
Quarter: 2004Q4

REPORT INFORMATION
  Report Type: 
  Country: None (occurrence: None)
  Receive Date: 20041103
  Receipt Date: 20041103
  Transmission Date: 20050328
  Serious: Yes (Hospitalization)
  Sender: FDA-Public Use
  Company Number: None

PATIENT
  Sex: Female
  Weight: 79 kg

DRUGS (2)
  1. CYTARABINE [Suspect]
     Indication: ACUTE MYELOID LEUKAEMIA
     Dosage: 189 MG DAILY X 7 DAYS INTRAVENOU
     Route: 042
     Dates: start: 20040716, end: 20040722
  2. DAUNO / VP 16 [Suspect]
     Indication: ACUTE MYELOID LEUKAEMIA
     Dosage: 170/189 MG DAILY X 3 DAYS INTRAVENOU
     Route: 042
     Dates: start: 20040716, end: 20040718

REACTIONS (6)
  - COMPUTERISED TOMOGRAM ABNORMAL [None]
  - DYSPHONIA [None]
  - INFECTION [None]
  - LOCAL SWELLING [None]
  - OXYGEN SATURATION DECREASED [None]
  - SOFT TISSUE DISORDER [None]
